FAERS Safety Report 17354366 (Version 1)
Quarter: 2020Q1

REPORT INFORMATION
  Report Type: Spontaneous
  Country: US (occurrence: US)
  Receive Date: 20200116
  Receipt Date: 20200116
  Transmission Date: 20200409
  Serious: Yes (Hospitalization)
  Sender: FDA-Public Use
  Company Number: None

PATIENT
  Age: 80 Year
  Sex: Female

DRUGS (22)
  1. ATORVASTATIN [Concomitant]
     Active Substance: ATORVASTATIN
  2. DOK [Concomitant]
     Active Substance: DOCUSATE SODIUM
  3. ENALAPRIL [Concomitant]
     Active Substance: ENALAPRIL
  4. TRIMETHP [Concomitant]
  5. VIT D [Concomitant]
     Active Substance: VITAMIN D NOS
  6. ELIQUIS [Concomitant]
     Active Substance: APIXABAN
  7. GABPENTIN [Concomitant]
  8. GLYBURIDE. [Concomitant]
     Active Substance: GLYBURIDE
  9. LEVOFLOXACIN. [Concomitant]
     Active Substance: LEVOFLOXACIN
  10. POLYMYXIN B SOL [Concomitant]
  11. ALBUTEROL NEB [Concomitant]
     Active Substance: ALBUTEROL
  12. PREDNISOLONE SUS [Concomitant]
  13. DILTIAZEM. [Concomitant]
     Active Substance: DILTIAZEM
  14. PREDNISONE. [Concomitant]
     Active Substance: PREDNISONE
  15. VIRTUSSIN AC SOL [Concomitant]
  16. ESBRIET [Suspect]
     Active Substance: PIRFENIDONE
     Indication: IDIOPATHIC PULMONARY FIBROSIS
     Route: 048
     Dates: start: 20191108
  17. ACYCLOVIR. [Concomitant]
     Active Substance: ACYCLOVIR
  18. FAMOTIDINE. [Concomitant]
     Active Substance: FAMOTIDINE
  19. FUROSEMIDE. [Concomitant]
     Active Substance: FUROSEMIDE
  20. HUMALOG [Concomitant]
     Active Substance: INSULIN LISPRO
  21. METFORMIN [Concomitant]
     Active Substance: METFORMIN HYDROCHLORIDE
  22. LEVOTHYROXIN [Concomitant]
     Active Substance: LEVOTHYROXINE

REACTIONS (1)
  - Bronchitis [None]

NARRATIVE: CASE EVENT DATE: 20191230
